FAERS Safety Report 6567346-2 (Version None)
Quarter: 2010Q1

REPORT INFORMATION
  Report Type: 
  Country: None (occurrence: None)
  Receive Date: 20100202
  Receipt Date: 20100122
  Transmission Date: 20100710
  Serious: Yes (Other)
  Sender: FDA-Public Use
  Company Number: PHHY2010BR03990

PATIENT
  Age: 33 Year
  Sex: Male

DRUGS (2)
  1. CATAFLAM [Suspect]
     Route: 048
  2. CATAFLAM [Suspect]

REACTIONS (2)
  - ARTHROPATHY [None]
  - LIGAMENT OPERATION [None]
